FAERS Safety Report 25213482 (Version 1)
Quarter: 2025Q2

REPORT INFORMATION
  Report Type: Spontaneous
  Country: US (occurrence: None)
  Receive Date: 20250417
  Receipt Date: 20250417
  Transmission Date: 20250716
  Serious: Yes (Death, Life-Threatening, Other)
  Sender: FDA-CTU
  Company Number: None

PATIENT
  Sex: Female
  Weight: 77.7 kg

DRUGS (1)
  1. CARVYKTI [Suspect]
     Active Substance: CILTACABTAGENE AUTOLEUCEL
     Indication: Plasma cell myeloma
     Route: 041
     Dates: start: 20250226, end: 20250226

REACTIONS (15)
  - Lymphocyte adoptive therapy [None]
  - Cytokine release syndrome [None]
  - Immune effector cell-associated neurotoxicity syndrome [None]
  - Cerebral disorder [None]
  - Subarachnoid haemorrhage [None]
  - Sedation [None]
  - COVID-19 [None]
  - Transfusion [None]
  - Cytopenia [None]
  - Acute respiratory failure [None]
  - Platelet transfusion [None]
  - Encephalopathy [None]
  - Pleural effusion [None]
  - Plasma cells present [None]
  - Therapy non-responder [None]
